FAERS Safety Report 25324002 (Version 1)
Quarter: 2025Q2

REPORT INFORMATION
  Report Type: Spontaneous
  Country: DE (occurrence: DE)
  Receive Date: 20250516
  Receipt Date: 20250516
  Transmission Date: 20250717
  Serious: Yes (Hospitalization)
  Sender: STALLERGENES
  Company Number: DE-PEI-202500010495

PATIENT
  Age: 18 Year
  Sex: Female
  Weight: 84 kg

DRUGS (1)
  1. ORALAIR [Suspect]
     Active Substance: ANTHOXANTHUM ODORATUM POLLEN\DACTYLIS GLOMERATA POLLEN\LOLIUM PERENNE POLLEN\PHLEUM PRATENSE POLLEN\
     Indication: Immune tolerance induction
     Route: 060
     Dates: start: 20250108, end: 20250109

REACTIONS (3)
  - Swollen tongue [Unknown]
  - Pruritus [Unknown]
  - Headache [Unknown]

NARRATIVE: CASE EVENT DATE: 20250109
